FAERS Safety Report 21442704 (Version 1)
Quarter: 2022Q4

REPORT INFORMATION
  Report Type: Spontaneous
  Country: US (occurrence: US)
  Receive Date: 20221012
  Receipt Date: 20221012
  Transmission Date: 20230112
  Serious: Yes (Other)
  Sender: FDA-Public Use
  Company Number: US-STRIDES ARCOLAB LIMITED-2022SP013173

PATIENT

DRUGS (2)
  1. RANITIDINE [Suspect]
     Active Substance: RANITIDINE
     Indication: Product used for unknown indication
     Dosage: UNK (ZANTAC) (BRAND) (CONTINUED TO USE IT THROUGH 2014)
     Route: 048
     Dates: start: 1995
  2. RANITIDINE [Suspect]
     Active Substance: RANITIDINE
     Dosage: UNK (RANITIDINE) (GENERIC)
     Route: 048

REACTIONS (1)
  - Bladder cancer [Unknown]
